FAERS Safety Report 9854996 (Version 1)
Quarter: 2013Q4

REPORT INFORMATION
  Report Type: Spontaneous
  Country: US (occurrence: None)
  Receive Date: 20131226
  Receipt Date: 20131226
  Transmission Date: 20140711
  Serious: Yes (Other)
  Sender: FDA-Public Use
  Company Number: PHEH2013US014911

PATIENT
  Age: 63 Year
  Sex: Female

DRUGS (1)
  1. AFINITOR (RAD) [Suspect]

REACTIONS (10)
  - Palmar-plantar erythrodysaesthesia syndrome [None]
  - Hot flush [None]
  - Constipation [None]
  - Diarrhoea [None]
  - Nausea [None]
  - Vomiting [None]
  - Decreased appetite [None]
  - Dry mouth [None]
  - Stomatitis [None]
  - Fatigue [None]
